FAERS Safety Report 15935681 (Version 2)
Quarter: 2019Q1

REPORT INFORMATION
  Report Type: Spontaneous
  Country: US (occurrence: US)
  Receive Date: 20190208
  Receipt Date: 20190323
  Transmission Date: 20190417
  Serious: No
  Sender: FDA-Public Use
  Company Number: US-BIOGEN-2019BI00693762

PATIENT
  Sex: Female

DRUGS (3)
  1. PRILOSEC OTC [Concomitant]
     Active Substance: OMEPRAZOLE MAGNESIUM
     Route: 050
  2. TECFIDERA [Suspect]
     Active Substance: DIMETHYL FUMARATE
     Indication: MULTIPLE SCLEROSIS
     Route: 050
  3. ASPIRIN. [Concomitant]
     Active Substance: ASPIRIN
     Route: 050

REACTIONS (2)
  - Malaise [Unknown]
  - Ear pain [Unknown]
